FAERS Safety Report 8392324-0 (Version None)
Quarter: 2012Q2

REPORT INFORMATION
  Report Type: 
  Country: None (occurrence: None)
  Receive Date: 20120529
  Receipt Date: 20120522
  Transmission Date: 20120825
  Serious: Yes (Death, Hospitalization, Other)
  Sender: FDA-Public Use
  Company Number: JP-ELI_LILLY_AND_COMPANY-JP201205001819

PATIENT
  Sex: Female
  Weight: 44.8 kg

DRUGS (2)
  1. ALIMTA [Suspect]
     Indication: LUNG ADENOCARCINOMA RECURRENT
     Dosage: 600 MG, UNK
     Route: 042
     Dates: start: 20120315
  2. ALIMTA [Suspect]
     Dosage: 500 MG, UNK
     Route: 042
     Dates: start: 20120409

REACTIONS (5)
  - PNEUMONIA [None]
  - FEBRILE NEUTROPENIA [None]
  - DISSEMINATED INTRAVASCULAR COAGULATION [None]
  - C-REACTIVE PROTEIN INCREASED [None]
  - NEOPLASM PROGRESSION [None]
